FAERS Safety Report 8848627 (Version 1)
Quarter: 2012Q4

REPORT INFORMATION
  Report Type: Spontaneous
  Country: BR (occurrence: None)
  Receive Date: 20121015
  Receipt Date: 20121015
  Transmission Date: 20130627
  Serious: Yes (Other)
  Sender: FDA-Public Use
  Company Number: BR-GDP-12415277

PATIENT
  Sex: Female

DRUGS (1)
  1. TRI-LUMA [Suspect]
     Indication: PRODUCT USED FOR UNKNOWN INDICATION
     Route: 061

REACTIONS (3)
  - Anaphylactic reaction [None]
  - Laryngeal oedema [None]
  - Hypersensitivity [None]
